FAERS Safety Report 22049143 (Version 1)
Quarter: 2023Q1

REPORT INFORMATION
  Report Type: Spontaneous
  Country: TW (occurrence: TW)
  Receive Date: 20230301
  Receipt Date: 20230301
  Transmission Date: 20230418
  Serious: Yes (Other)
  Sender: FDA-Public Use
  Company Number: TW-MYLANLABS-2023M1022813

PATIENT
  Age: 24 Year
  Sex: Female

DRUGS (4)
  1. IRINOTECAN [Suspect]
     Active Substance: IRINOTECAN
     Indication: Colorectal adenocarcinoma
     Dosage: 180 MILLIGRAM/SQ. METER, Q2H,ON DAY 1
     Route: 042
  2. FLUOROURACIL [Suspect]
     Active Substance: FLUOROURACIL
     Indication: Colorectal adenocarcinoma
     Dosage: 1200 MILLIGRAM/SQ. METER; 23 HOURS, ON DAY 1 AND 2; CYCLED EVERY 14 DAYS
     Route: 042
  3. BEVACIZUMAB [Suspect]
     Active Substance: BEVACIZUMAB
     Indication: Colorectal adenocarcinoma
     Dosage: 5 MILLIGRAM/KILOGRAM, Q2H, ON DAY 1
     Route: 042
  4. LEUCOVORIN [Suspect]
     Active Substance: LEUCOVORIN
     Indication: Colorectal adenocarcinoma
     Dosage: 200 MILLIGRAM/SQ. METER, Q2H, ON DAY 1 AND 2
     Route: 042

REACTIONS (2)
  - Gastric ulcer [Recovered/Resolved]
  - Muscle twitching [Recovered/Resolved]
